FAERS Safety Report 7181729-1 (Version None)
Quarter: 2010Q4

REPORT INFORMATION
  Report Type: 
  Country: None (occurrence: None)
  Receive Date: 20101221
  Receipt Date: 20100429
  Transmission Date: 20110411
  Serious: No
  Sender: FDA-Public Use
  Company Number: US-AMGEN-KDL409424

PATIENT

DRUGS (29)
  1. ENBREL [Suspect]
     Indication: RHEUMATOID ARTHRITIS
     Dosage: 50 MG, QWK
     Route: 058
     Dates: start: 20080121
  2. MONTELUKAST [Concomitant]
     Dosage: 10 MG, UNK
  3. FUROSEMIDE [Concomitant]
     Dosage: 80 MG, UNK
  4. PREDNISONE [Concomitant]
     Dosage: 2.5 MG, UNK
  5. METOCLOPRAMIDE [Concomitant]
     Dosage: 10 MG, UNK
  6. TRAMADOL HYDROCHLORIDE [Concomitant]
     Dosage: 50 MG, UNK
  7. GABAPENTIN [Concomitant]
     Dosage: 100 MG, UNK
  8. GABAPENTIN [Concomitant]
     Dosage: 600 MG, UNK
  9. LISINOPRIL [Concomitant]
     Dosage: 20 MG, UNK
  10. ACTONEL [Concomitant]
     Dosage: 5 MG, UNK
  11. TRIAMCINOLONE [Concomitant]
     Dosage: .1 %, UNK
  12. INSULIN ASPART [Concomitant]
     Dosage: UNK UNK, UNK
  13. SALBUTAMOL [Concomitant]
     Dosage: UNK UNK, UNK
  14. FLUTICASONE/SALMETEROL [Concomitant]
     Dosage: UNK UNK, UNK
  15. LOVAZA [Concomitant]
     Dosage: UNK UNK, UNK
  16. ASCORBIC ACID [Concomitant]
     Dosage: 500 MG, TID
  17. DOXYCYCLINE [Concomitant]
     Dosage: 100 MG, UNK
  18. ERGOCALCIFEROL [Concomitant]
     Dosage: 50000 IU, UNK
  19. ALPRAZOLAM [Concomitant]
     Dosage: .25 MG, UNK
  20. ACETAMINOPHEN AND HYDROCODONE BITARTRATE [Concomitant]
     Dosage: 7.5 MG, UNK
  21. ROSUVASTATIN CALCIUM [Concomitant]
     Dosage: 5 MG, UNK
  22. METAXALONE [Concomitant]
     Dosage: 800 MG, UNK
  23. VITAMIN B COMPLEX [Concomitant]
     Dosage: UNK UNK, UNK
  24. NYSTATIN [Concomitant]
     Dosage: UNK UNK, UNK
  25. CYANOCOBALAMIN [Concomitant]
     Dosage: 1000 A?G, UNK
  26. CALCIUM WITH VITAMIN D [Concomitant]
     Dosage: UNK UNK, UNK
  27. ACETYLSALICYLIC ACID [Concomitant]
     Dosage: 81 MG, UNK
  28. POTASSIUM CHLORIDE [Concomitant]
     Dosage: 10 MEQ, UNK
  29. MAGNESIUM OXIDE [Concomitant]
     Dosage: 400 MG, UNK

REACTIONS (5)
  - BLOOD PRESSURE DECREASED [None]
  - CELLULITIS [None]
  - HYPOAESTHESIA [None]
  - INCREASED TENDENCY TO BRUISE [None]
  - PARAESTHESIA [None]
